FAERS Safety Report 15146809 (Version 1)
Quarter: 2018Q3

REPORT INFORMATION
  Report Type: Spontaneous
  Country: US (occurrence: US)
  Receive Date: 20180716
  Receipt Date: 20180716
  Transmission Date: 20181010
  Serious: Yes (Other)
  Sender: FDA-Public Use
  Company Number: US-STRIDES ARCOLAB LIMITED-2017SP014312

PATIENT

DRUGS (24)
  1. PREDNISOLONE. [Suspect]
     Active Substance: PREDNISOLONE
     Indication: AUTOIMMUNE THYROIDITIS
  2. MELPHALAN. [Suspect]
     Active Substance: MELPHALAN
     Indication: AMYLOIDOSIS
  3. MYCOPHENOLATE MOFETIL. [Suspect]
     Active Substance: MYCOPHENOLATE MOFETIL
     Indication: AMYLOIDOSIS
  4. PREDNISOLONE. [Suspect]
     Active Substance: PREDNISOLONE
     Indication: AMYLOIDOSIS
  5. MELPHALAN. [Suspect]
     Active Substance: MELPHALAN
     Indication: STEM CELL TRANSPLANT
  6. MELPHALAN. [Suspect]
     Active Substance: MELPHALAN
     Indication: PNEUMONIA
  7. MELPHALAN. [Suspect]
     Active Substance: MELPHALAN
     Indication: AUTOIMMUNE THYROIDITIS
  8. TACROLIMUS. [Suspect]
     Active Substance: TACROLIMUS
     Indication: PNEUMONIA
  9. TACROLIMUS. [Suspect]
     Active Substance: TACROLIMUS
     Indication: AMYLOIDOSIS
  10. PREDNISOLONE. [Suspect]
     Active Substance: PREDNISOLONE
     Indication: CHRONIC KIDNEY DISEASE
  11. MELPHALAN. [Suspect]
     Active Substance: MELPHALAN
     Indication: HEART TRANSPLANT
     Dosage: UNK
     Route: 065
  12. MYCOPHENOLATE MOFETIL. [Suspect]
     Active Substance: MYCOPHENOLATE MOFETIL
     Indication: HEART TRANSPLANT
     Dosage: UNK
     Route: 065
  13. MYCOPHENOLATE MOFETIL. [Suspect]
     Active Substance: MYCOPHENOLATE MOFETIL
     Indication: CHRONIC KIDNEY DISEASE
  14. TACROLIMUS. [Suspect]
     Active Substance: TACROLIMUS
     Indication: AUTOIMMUNE THYROIDITIS
  15. PREDNISOLONE. [Suspect]
     Active Substance: PREDNISOLONE
     Indication: STEM CELL TRANSPLANT
  16. PREDNISOLONE. [Suspect]
     Active Substance: PREDNISOLONE
     Indication: HEART TRANSPLANT
     Dosage: UNK
     Route: 065
  17. MELPHALAN. [Suspect]
     Active Substance: MELPHALAN
     Indication: CHRONIC KIDNEY DISEASE
  18. MYCOPHENOLATE MOFETIL. [Suspect]
     Active Substance: MYCOPHENOLATE MOFETIL
     Indication: STEM CELL TRANSPLANT
  19. MYCOPHENOLATE MOFETIL. [Suspect]
     Active Substance: MYCOPHENOLATE MOFETIL
     Indication: AUTOIMMUNE THYROIDITIS
  20. TACROLIMUS. [Suspect]
     Active Substance: TACROLIMUS
     Indication: HEART TRANSPLANT
     Dosage: UNK
     Route: 065
  21. TACROLIMUS. [Suspect]
     Active Substance: TACROLIMUS
     Indication: STEM CELL TRANSPLANT
  22. PREDNISOLONE. [Suspect]
     Active Substance: PREDNISOLONE
     Indication: PNEUMONIA
  23. MYCOPHENOLATE MOFETIL. [Suspect]
     Active Substance: MYCOPHENOLATE MOFETIL
     Indication: PNEUMONIA
  24. TACROLIMUS. [Suspect]
     Active Substance: TACROLIMUS
     Indication: CHRONIC KIDNEY DISEASE

REACTIONS (7)
  - Paraesthesia [Recovered/Resolved]
  - Personality change [Recovered/Resolved]
  - Paraparesis [Recovered/Resolved]
  - Brain abscess [Recovered/Resolved]
  - Headache [Recovered/Resolved]
  - Nocardiosis [Recovered/Resolved]
  - Irritability [Recovered/Resolved]
